FAERS Safety Report 9500820 (Version 2)
Quarter: 2013Q4

REPORT INFORMATION
  Report Type: Spontaneous
  Country: FR (occurrence: FR)
  Receive Date: 20130905
  Receipt Date: 20131219
  Transmission Date: 20140711
  Serious: Yes (Hospitalization)
  Sender: FDA-Public Use
  Company Number: FR-PFIZER INC-2013250276

PATIENT
  Age: 59 Year
  Sex: Female

DRUGS (8)
  1. AROMASINE [Suspect]
     Indication: BREAST CANCER METASTATIC
     Dosage: 25 MG, 1X/DAY
     Route: 048
     Dates: start: 20130525, end: 20130708
  2. AFINITOR [Suspect]
     Indication: BREAST CANCER METASTATIC
     Dosage: 10 MG, 1X/DAY
     Route: 048
     Dates: start: 20130525, end: 20130615
  3. AFINITOR [Suspect]
     Dosage: 5 MG, 1X/DAY
     Route: 048
     Dates: start: 20130615, end: 20130708
  4. PARIET [Concomitant]
     Dosage: 1 DF, 1X/DAY
     Route: 048
  5. GLUCOPHAGE [Concomitant]
     Indication: TYPE 2 DIABETES MELLITUS
     Route: 048
  6. DUROGESIC [Concomitant]
     Indication: PAIN
     Dosage: 100 UG/HOUR (16.8 MG/ 42 CM2) 1 DF, EVERY 3 DAYS
     Route: 062
  7. SOLUPRED [Concomitant]
     Indication: PAIN
     Dosage: 60 MG, 1X/DAY
     Route: 048
  8. DAFALGAN CODEINE [Concomitant]
     Indication: PAIN
     Route: 048

REACTIONS (3)
  - Mucosal inflammation [Recovered/Resolved]
  - Rash [Recovered/Resolved]
  - Palmar-plantar erythrodysaesthesia syndrome [Recovered/Resolved]
